FAERS Safety Report 17185691 (Version 1)
Quarter: 2019Q4

REPORT INFORMATION
  Report Type: Spontaneous
  Country: TR (occurrence: TR)
  Receive Date: 20191112
  Receipt Date: 20191112
  Transmission Date: 20200122
  Serious: Yes (Death, Hospitalization, Other)
  Sender: FDA-Public Use
  Company Number: COMB WO BRANDNAME COMMONDEVICENAME PRODUCTCODE

PATIENT

DRUGS (7)
  1. ALSUMA [Concomitant]
     Active Substance: SUMATRIPTAN SUCCINATE
     Indication: PRODUCT USED FOR UNKNOWN INDICATION
     Dosage: 800/160MG 2X/WEEK
  2. AUVI-Q [Suspect]
     Active Substance: EPINEPHRINE
     Indication: CHRONIC MYELOID LEUKAEMIA
     Dosage: 45 MG, QD
     Route: 048
     Dates: start: 201412
  3. OCRELIZUMAB. [Concomitant]
     Indication: PRODUCT USED FOR UNKNOWN INDICATION
     Dosage: 40 MG, QD
  4. SANDIMUN [Concomitant]
     Active Substance: CYCLOSPORINE
     Indication: PRODUCT USED FOR UNKNOWN INDICATION
     Dosage: 150 MG, BID
  5. ALSUMA [Suspect]
     Active Substance: SUMATRIPTAN SUCCINATE
     Indication: CHRONIC MYELOID LEUKAEMIA
     Dosage: 45 MG, QD
     Route: 048
     Dates: start: 201412
  6. NOXAFIL [Concomitant]
     Active Substance: POSACONAZOLE
     Indication: PRODUCT USED FOR UNKNOWN INDICATION
     Dosage: 400 MG, TID
  7. DAFLON [Concomitant]
     Indication: PRODUCT USED FOR UNKNOWN INDICATION
     Dosage: 1000 MG, BID

REACTIONS (4)
  - Cardiac iron overload [Fatal]
  - Therapeutic response decreased [Unknown]
  - Septic shock [Fatal]
  - Congenital nipple inversion [Fatal]

NARRATIVE: CASE EVENT DATE: 20160308
